FAERS Safety Report 20879216 (Version 3)
Quarter: 2022Q3

REPORT INFORMATION
  Report Type: Report from Study
  Country: US (occurrence: US)
  Receive Date: 20220526
  Receipt Date: 20220726
  Transmission Date: 20221027
  Serious: Yes (Other)
  Sender: FDA-Public Use
  Company Number: US-TAKEDA-US202000710

PATIENT
  Age: 56 Year
  Sex: Male

DRUGS (8)
  1. TEDUGLUTIDE [Suspect]
     Active Substance: TEDUGLUTIDE
     Indication: Short-bowel syndrome
     Dosage: 2.4 MILLIGRAM, QD
     Route: 042
     Dates: start: 20140626, end: 20140901
  2. TEDUGLUTIDE [Suspect]
     Active Substance: TEDUGLUTIDE
     Indication: Short-bowel syndrome
     Dosage: 2.4 MILLIGRAM, QD
     Route: 042
     Dates: start: 20140626, end: 20140901
  3. TEDUGLUTIDE [Suspect]
     Active Substance: TEDUGLUTIDE
     Indication: Short-bowel syndrome
     Dosage: 2.4 MILLIGRAM, QD
     Route: 042
     Dates: start: 20140626, end: 20140901
  4. TEDUGLUTIDE [Suspect]
     Active Substance: TEDUGLUTIDE
     Indication: Short-bowel syndrome
     Dosage: 2.4 MILLIGRAM, QD
     Route: 042
     Dates: start: 20140626, end: 20140901
  5. PREDNISOLONE ACETATE [Concomitant]
     Active Substance: PREDNISOLONE ACETATE
     Indication: Candida endophthalmitis
     Dosage: 1 MILLILITER, QID
     Route: 047
  6. ACETAMINOPHEN [Concomitant]
     Active Substance: ACETAMINOPHEN
     Indication: Arthritis bacterial
     Dosage: 325 MILLIGRAM
     Route: 048
     Dates: start: 20180305, end: 20190220
  7. VITAMINS [Concomitant]
     Active Substance: VITAMINS
     Indication: Short-bowel syndrome
     Dosage: 2 DOSAGE FORM, QD
     Route: 048
  8. SANDOSTATIN LAR DEPOT [Concomitant]
     Active Substance: OCTREOTIDE ACETATE
     Indication: Diarrhoea
     Dosage: 20 MILLIGRAM, Q7WEEKS
     Route: 030
     Dates: start: 20180104

REACTIONS (1)
  - Staphylococcal sepsis [Recovered/Resolved]

NARRATIVE: CASE EVENT DATE: 20150514
